FAERS Safety Report 15610337 (Version 1)
Quarter: 2018Q4

REPORT INFORMATION
  Report Type: Spontaneous
  Country: JP (occurrence: JP)
  Receive Date: 20181113
  Receipt Date: 20181113
  Transmission Date: 20190205
  Serious: Yes (Hospitalization)
  Sender: FDA-Public Use
  Company Number: JP-ORPHAN EUROPE-2058758

PATIENT
  Age: 17 Day
  Weight: 3.57 kg

DRUGS (16)
  1. CARBAGLU [Suspect]
     Active Substance: CARGLUMIC ACID
     Indication: HYPERAMMONAEMIA
     Route: 050
     Dates: start: 20171013, end: 20171110
  2. FUNGUARD [Concomitant]
     Active Substance: MICAFUNGIN SODIUM
     Dates: start: 20171012, end: 20171110
  3. SODIUM BICARBONATE. [Concomitant]
     Active Substance: SODIUM BICARBONATE
     Dates: start: 20171030, end: 20171110
  4. METHYCOBAL [Concomitant]
     Active Substance: METHYLCOBALAMIN
     Route: 050
     Dates: start: 20171010, end: 20171110
  5. JUVELA N [Concomitant]
     Active Substance: TOCOPHERYL NICOTINATE, D-.ALPHA.
     Route: 050
     Dates: start: 20171010, end: 20171110
  6. BENFOTIAMINE [Concomitant]
     Active Substance: BENFOTIAMINE
     Dates: start: 20171010, end: 20171110
  7. MEROPENEM. [Concomitant]
     Active Substance: MEROPENEM
     Dates: start: 20171011, end: 20171110
  8. NEUQUINON [Concomitant]
     Active Substance: UBIDECARENONE
     Dates: start: 20171010, end: 20171110
  9. GM [Concomitant]
     Dates: start: 20171010, end: 20171110
  10. ARGI U [Concomitant]
     Dates: start: 20171011, end: 20171110
  11. AMPICILLIN [Concomitant]
     Active Substance: AMPICILLIN
     Route: 048
     Dates: start: 20171010, end: 20171110
  12. HICEE [Concomitant]
     Route: 050
     Dates: start: 20171010, end: 20171110
  13. VANCOMYCIN [Concomitant]
     Active Substance: VANCOMYCIN
     Dates: start: 20171012, end: 20171110
  14. BIOTIN [Concomitant]
     Active Substance: BIOTIN
     Dates: start: 20171010, end: 20171110
  15. BUPHENYL [Concomitant]
     Active Substance: SODIUM PHENYLBUTYRATE
     Route: 050
     Dates: start: 20171010, end: 20171110
  16. FRESMIN S [Concomitant]
     Active Substance: HYDROXOCOBALAMIN
     Dates: start: 20171013, end: 20171110

REACTIONS (4)
  - Bacteraemia [Recovered/Resolved]
  - Cholestasis [Recovering/Resolving]
  - Anaemia [Unknown]
  - Condition aggravated [Recovered/Resolved]

NARRATIVE: CASE EVENT DATE: 20171023
